FAERS Safety Report 10596918 (Version 3)
Quarter: 2014Q4

REPORT INFORMATION
  Report Type: Spontaneous
  Country: US (occurrence: US)
  Receive Date: 20141120
  Receipt Date: 20141203
  Transmission Date: 20150529
  Serious: No
  Sender: FDA-Public Use
  Company Number: US-GLAXOSMITHKLINE-A1028823A

PATIENT
  Age: 66 Year
  Sex: Female

DRUGS (16)
  1. NEXIUM [Concomitant]
     Active Substance: ESOMEPRAZOLE MAGNESIUM
  2. METOPROLOL [Concomitant]
     Active Substance: METOPROLOL
  3. RENA-VITE [Concomitant]
     Active Substance: VITAMINS
  4. ADVAIR DISKUS [Suspect]
     Active Substance: FLUTICASONE PROPIONATE\SALMETEROL XINAFOATE
     Indication: EMPHYSEMA
  5. VENTOLIN HFA [Concomitant]
     Active Substance: ALBUTEROL SULFATE
  6. HUMULIN N [Concomitant]
     Active Substance: INSULIN HUMAN
  7. RENVELA [Concomitant]
     Active Substance: SEVELAMER CARBONATE
  8. ADVAIR DISKUS [Suspect]
     Active Substance: FLUTICASONE PROPIONATE\SALMETEROL XINAFOATE
     Indication: BRONCHITIS CHRONIC
     Dosage: UNK
  9. MIRTAZAPINE MYLAN [Concomitant]
  10. PLAVIX [Concomitant]
     Active Substance: CLOPIDOGREL BISULFATE
  11. XANAX [Concomitant]
     Active Substance: ALPRAZOLAM
  12. LIPITOR [Concomitant]
     Active Substance: ATORVASTATIN CALCIUM
  13. ALBUTEROL NEBULIZER [Concomitant]
     Active Substance: ALBUTEROL
  14. ONDANSETRON [Concomitant]
     Active Substance: ONDANSETRON
  15. ADVAIR DISKUS [Suspect]
     Active Substance: FLUTICASONE PROPIONATE\SALMETEROL XINAFOATE
     Indication: CHRONIC OBSTRUCTIVE PULMONARY DISEASE
     Dosage: 1 PUFF(S), BID
     Route: 055
  16. OXYGEN. [Concomitant]
     Active Substance: OXYGEN

REACTIONS (3)
  - Drug ineffective [Not Recovered/Not Resolved]
  - Dyspnoea [Recovering/Resolving]
  - Product quality issue [Unknown]

NARRATIVE: CASE EVENT DATE: 20130617
